FAERS Safety Report 6342241-2 (Version None)
Quarter: 2009Q3

REPORT INFORMATION
  Report Type: 
  Country: None (occurrence: None)
  Receive Date: 20090903
  Receipt Date: 20090903
  Transmission Date: 20100115
  Serious: No
  Sender: FDA-Public Use
  Company Number: None

PATIENT
  Age: 63 Year
  Sex: Female
  Weight: 57.1532 kg

DRUGS (2)
  1. ACETAMINOPHEN AND CODEINE PHOSPHATE [Suspect]
     Indication: MIGRAINE
     Dosage: 1/2 TSP 047
     Dates: start: 20090819
  2. KERLONE [Concomitant]

REACTIONS (3)
  - DRUG INTOLERANCE [None]
  - REACTION TO DRUG EXCIPIENTS [None]
  - THROAT TIGHTNESS [None]
